FAERS Safety Report 4952373-9 (Version None)
Quarter: 2006Q1

REPORT INFORMATION
  Report Type: 
  Country: None (occurrence: None)
  Receive Date: 20060320
  Receipt Date: 20060310
  Transmission Date: 20060701
  Serious: Yes (Hospitalization)
  Sender: FDA-Public Use
  Company Number: 212826

PATIENT
  Age: 72 Year
  Sex: Male

DRUGS (10)
  1. XOLAIR [Suspect]
     Indication: ASTHMA
     Dosage: 375 MG, Q2W, SUBCUTANEOUS
     Route: 058
     Dates: start: 20041104, end: 20041118
  2. XOLAIR [Suspect]
     Indication: ASTHMA
     Dosage: 375 MG, Q2W, SUBCUTANEOUS
     Route: 058
     Dates: start: 20041204, end: 20041216
  3. XOLAIR [Suspect]
     Indication: ASTHMA
     Dosage: 375 MG, Q2W, SUBCUTANEOUS
     Route: 058
     Dates: start: 20041230, end: 20041230
  4. XOLAIR [Suspect]
  5. ADVAIR DISKUS 100/50 [Concomitant]
  6. ALBUTEROL (ALBUTEROL/ALBUTEROL SULFATE) [Concomitant]
  7. ATROVENT [Concomitant]
  8. PRILOSEC [Concomitant]
  9. SPIRIVA [Concomitant]
  10. FLU VACCINE (INFLUENZA VIRUS VACCINE) [Concomitant]

REACTIONS (11)
  - ASTHMA [None]
  - CHRONIC OBSTRUCTIVE PULMONARY DISEASE [None]
  - CONDITION AGGRAVATED [None]
  - EJECTION FRACTION DECREASED [None]
  - INFLAMMATION [None]
  - MYOPERICARDITIS [None]
  - PERICARDIAL EFFUSION [None]
  - PHARMACEUTICAL PRODUCT COMPLAINT [None]
  - PLEURITIC PAIN [None]
  - PYREXIA [None]
  - REFUSAL OF TREATMENT BY PATIENT [None]
